FAERS Safety Report 16787622 (Version 1)
Quarter: 2019Q3

REPORT INFORMATION
  Report Type: Spontaneous
  Country: FR (occurrence: FR)
  Receive Date: 20190909
  Receipt Date: 20190909
  Transmission Date: 20191005
  Serious: Yes (Hospitalization)
  Sender: FDA-Public Use
  Company Number: FR-EMD SERONO-E2B_90070469

PATIENT
  Sex: Female

DRUGS (3)
  1. VP-16 [Concomitant]
     Active Substance: ETOPOSIDE
     Indication: NEUROENDOCRINE CARCINOMA OF THE SKIN
     Dates: start: 20190827
  2. CARBOPLATIN. [Concomitant]
     Active Substance: CARBOPLATIN
     Indication: NEUROENDOCRINE CARCINOMA OF THE SKIN
     Dates: start: 20190827
  3. BAVENCIO [Suspect]
     Active Substance: AVELUMAB
     Indication: NEUROENDOCRINE CARCINOMA OF THE SKIN
     Route: 042
     Dates: start: 20190827

REACTIONS (10)
  - Off label use [Unknown]
  - Hyperthermia [Recovering/Resolving]
  - Logorrhoea [Unknown]
  - Aphasia [Recovering/Resolving]
  - Hallucination [Unknown]
  - Delirium [Unknown]
  - Cerebrovascular accident [Unknown]
  - Chills [Unknown]
  - Hemiplegia [Recovering/Resolving]
  - Device related infection [Unknown]

NARRATIVE: CASE EVENT DATE: 20190827
